FAERS Safety Report 14016274 (Version 1)
Quarter: 2017Q3

REPORT INFORMATION
  Report Type: Spontaneous
  Country: US (occurrence: US)
  Receive Date: 20170927
  Receipt Date: 20170927
  Transmission Date: 20171128
  Serious: No
  Sender: FDA-Public Use
  Company Number: US-SA-2016SA228083

PATIENT

DRUGS (2)
  1. SOLU-MEDROL [Suspect]
     Active Substance: METHYLPREDNISOLONE SODIUM SUCCINATE
     Route: 065
  2. LEMTRADA [Suspect]
     Active Substance: ALEMTUZUMAB
     Route: 042

REACTIONS (1)
  - Headache [Recovered/Resolved]
